FAERS Safety Report 5921187-5 (Version None)
Quarter: 2008Q4

REPORT INFORMATION
  Report Type: 
  Country: None (occurrence: None)
  Receive Date: 20081016
  Receipt Date: 20081013
  Transmission Date: 20090506
  Serious: Yes (Other)
  Sender: FDA-Public Use
  Company Number: US-B.I. PHARMACEUTICALS,INC./RIDGEFIELD-2008-BP-15750BP

PATIENT
  Age: 58 Year
  Sex: Female

DRUGS (3)
  1. CATAPRES-TTS-1 [Suspect]
     Indication: HYPERTENSION
     Dosage: .2MG
     Route: 061
     Dates: start: 20080701, end: 20081008
  2. HRT PATCH [Concomitant]
     Indication: MENOPAUSE
     Route: 061
  3. CLONIDINE [Concomitant]
     Indication: HYPERTENSION
     Route: 048
     Dates: start: 20080401

REACTIONS (5)
  - APPLICATION SITE BLEEDING [None]
  - APPLICATION SITE IRRITATION [None]
  - APPLICATION SITE RASH [None]
  - BLOOD PRESSURE INCREASED [None]
  - URTICARIA [None]
